FAERS Safety Report 9339802 (Version 2)
Quarter: 2013Q2

REPORT INFORMATION
  Report Type: Spontaneous
  Country: GB (occurrence: None)
  Receive Date: 20130605
  Receipt Date: 20130612
  Transmission Date: 20140414
  Serious: Yes (Hospitalization, Other)
  Sender: FDA-Public Use
  Company Number: FK201301883

PATIENT
  Age: 27 Year
  Sex: Female
  Weight: 70 kg

DRUGS (12)
  1. METHOTREXATE [Suspect]
     Indication: PRODUCT USED FOR UNKNOWN INDICATION
     Dates: start: 201001
  2. RITUXIMAB [Suspect]
     Indication: PRODUCT USED FOR UNKNOWN INDICATION
     Dosage: INTRAVENOUS (NOT OTHERWISE)
     Route: 042
     Dates: start: 201001
  3. ROACTEMRA [Suspect]
     Indication: RHEUMATOID ARTHRITIS
     Dosage: 1 IN 1 M
     Route: 042
     Dates: start: 201104
  4. PREDNISOLONE [Concomitant]
  5. BISOPROLOL [Concomitant]
  6. CITALOPRAM [Concomitant]
  7. GABAPENTIN [Concomitant]
  8. HYDROXYCHLOROQUINE [Concomitant]
  9. INSULIN [Concomitant]
  10. LEVOTHYROXINE [Concomitant]
  11. OXYCODONE [Concomitant]
  12. THYROXINE (LEVOTHYROXINE SODIUM) [Concomitant]

REACTIONS (7)
  - Alopecia [None]
  - Nausea [None]
  - Neoplasm [None]
  - Pelvic inflammatory disease [None]
  - Cellulitis [None]
  - Endometriosis [None]
  - Skin lesion [None]
